FAERS Safety Report 8427421-4 (Version None)
Quarter: 2012Q2

REPORT INFORMATION
  Report Type: 
  Country: None (occurrence: None)
  Receive Date: 20120611
  Receipt Date: 20120531
  Transmission Date: 20120825
  Serious: Yes (Other)
  Sender: FDA-Public Use
  Company Number: US-BRISTOL-MYERS SQUIBB COMPANY-16595522

PATIENT
  Age: 59 Year
  Sex: Male

DRUGS (1)
  1. SPRYCEL [Suspect]

REACTIONS (1)
  - NEPHROLITHIASIS [None]
